FAERS Safety Report 24304228 (Version 3)
Quarter: 2025Q3

REPORT INFORMATION
  Report Type: Report from Study
  Country: EU (occurrence: EU)
  Receive Date: 20240910
  Receipt Date: 20250813
  Transmission Date: 20251021
  Serious: Yes (Hospitalization)
  Sender: ROCHE
  Company Number: EU-ROCHE-10000070540

PATIENT
  Age: 64 Year
  Sex: Female

DRUGS (6)
  1. OBINUTUZUMAB [Suspect]
     Active Substance: OBINUTUZUMAB
     Indication: Follicular lymphoma
     Route: 042
     Dates: start: 20230814, end: 20230814
  2. OBINUTUZUMAB [Suspect]
     Active Substance: OBINUTUZUMAB
     Route: 042
     Dates: start: 20230830, end: 20240924
  3. OBINUTUZUMAB [Suspect]
     Active Substance: OBINUTUZUMAB
     Route: 042
     Dates: start: 20230830, end: 20250114
  4. OBINUTUZUMAB [Suspect]
     Active Substance: OBINUTUZUMAB
     Route: 042
     Dates: start: 20230814, end: 20231009
  5. OBINUTUZUMAB [Suspect]
     Active Substance: OBINUTUZUMAB
     Route: 042
     Dates: start: 20230814, end: 20231204
  6. OBINUTUZUMAB [Suspect]
     Active Substance: OBINUTUZUMAB
     Route: 042
     Dates: start: 20230814, end: 20240409

REACTIONS (10)
  - Urinary tract infection [Recovered/Resolved]
  - Arthritis reactive [Recovered/Resolved]
  - Polyarthritis [Recovered/Resolved]
  - COVID-19 [Recovered/Resolved]
  - Pneumonia [Recovered/Resolved]
  - Superinfection bacterial [Recovered/Resolved]
  - Bronchitis [Recovered/Resolved]
  - COVID-19 pneumonia [Unknown]
  - Pneumonia [Unknown]
  - Pulmonary sepsis [Recovered/Resolved]

NARRATIVE: CASE EVENT DATE: 20230929
